FAERS Safety Report 10059638 (Version 2)
Quarter: 2014Q2

REPORT INFORMATION
  Report Type: Spontaneous
  Country: US (occurrence: US)
  Receive Date: 20140404
  Receipt Date: 20140416
  Transmission Date: 20141212
  Serious: No
  Sender: FDA-Public Use
  Company Number: US-009507513-1404USA001948

PATIENT
  Age: 56 Year
  Sex: Male

DRUGS (3)
  1. AMITRIPTYLINE HYDROCHLORIDE [Suspect]
     Dosage: SUBSTANCE ABUSE, CHRONIC, BINGE
     Route: 048
  2. CYCLOBENZAPRINE HYDROCHLORIDE [Suspect]
     Dosage: SUBSTANCE ABUSE, CHRONIC, BINGE
  3. METHADONE HYDROCHLORIDE [Concomitant]

REACTIONS (2)
  - Intentional product misuse [Unknown]
  - Intentional overdose [Unknown]
